FAERS Safety Report 20330909 (Version 1)
Quarter: 2022Q1

REPORT INFORMATION
  Report Type: Spontaneous
  Country: None (occurrence: US)
  Receive Date: 20220113
  Receipt Date: 20220113
  Transmission Date: 20220423
  Serious: Yes (Other)
  Sender: FDA-Public Use
  Company Number: US-Appco Pharma LLC-2123887

PATIENT
  Sex: Male

DRUGS (2)
  1. MODAFINIL [Suspect]
     Active Substance: MODAFINIL
     Indication: Disturbance in attention
     Route: 048
     Dates: start: 20211205
  2. SUMATRIPTAN [Concomitant]
     Active Substance: SUMATRIPTAN
     Route: 065

REACTIONS (3)
  - Rectal haemorrhage [Unknown]
  - Off label use [Unknown]
  - Tinnitus [Unknown]
